FAERS Safety Report 19178180 (Version 3)
Quarter: 2021Q2

REPORT INFORMATION
  Report Type: Report from Study
  Country: None (occurrence: US)
  Receive Date: 20210426
  Receipt Date: 20210527
  Transmission Date: 20210717
  Serious: Yes (Hospitalization, Other)
  Sender: FDA-Public Use
  Company Number: US-ABBVIE-21K-163-3829891-00

PATIENT
  Sex: Female

DRUGS (2)
  1. VENCLEXTA [Suspect]
     Active Substance: VENETOCLAX
     Indication: ACUTE MYELOID LEUKAEMIA
     Dosage: TAKE FOUR TABLETS BY MOUTH EVERY DAY
     Route: 048
  2. VENCLEXTA [Suspect]
     Active Substance: VENETOCLAX
     Indication: ACUTE MYELOID LEUKAEMIA
     Dosage: TAKE FOUR TABLETS BY MOUTH EVERY DAY
     Route: 048

REACTIONS (6)
  - Pain in extremity [Unknown]
  - Pain [Unknown]
  - Off label use [Unknown]
  - Cerebral haemorrhage [Unknown]
  - Mobility decreased [Unknown]
  - Haemoptysis [Unknown]
